FAERS Safety Report 6635388-4 (Version None)
Quarter: 2010Q1

REPORT INFORMATION
  Report Type: 
  Country: None (occurrence: None)
  Receive Date: 20100315
  Receipt Date: 20100225
  Transmission Date: 20100710
  Serious: Yes (Other)
  Sender: FDA-Public Use
  Company Number: JP-GENENTECH-299184

PATIENT
  Age: 66 Year
  Sex: Female

DRUGS (7)
  1. XOLAIR [Suspect]
     Indication: ASTHMA
     Dosage: 150 MG, 1/MONTH
     Route: 058
     Dates: start: 20091112
  2. XOLAIR [Suspect]
     Dosage: 150 MG, 1/MONTH
     Route: 058
  3. XOLAIR [Suspect]
     Dosage: 150 MG, 1/MONTH
     Route: 058
  4. XOLAIR [Suspect]
     Dosage: 150 MG, 1/MONTH
     Route: 058
  5. SYMBICORT [Suspect]
     Indication: ASTHMA
     Dosage: UNK
     Dates: start: 20100204
  6. POLARAMINE [Suspect]
     Indication: DRUG USE FOR UNKNOWN INDICATION
     Dosage: UNK
     Route: 048
     Dates: start: 20090302
  7. CEFCAPENE PIVOXIL HYDROCHLORIDE [Concomitant]
     Indication: DRUG USE FOR UNKNOWN INDICATION

REACTIONS (1)
  - HEPATIC FUNCTION ABNORMAL [None]
